FAERS Safety Report 8842433 (Version 1)
Quarter: 2012Q4

REPORT INFORMATION
  Report Type: Spontaneous
  Country: US (occurrence: None)
  Receive Date: 20121015
  Receipt Date: 20121015
  Transmission Date: 20130627
  Serious: No
  Sender: FDA-Public Use
  Company Number: None

PATIENT
  Age: 58 Year
  Sex: Female
  Weight: 88.45 kg

DRUGS (1)
  1. ESCITALOPRAM [Suspect]
     Indication: ANXIETY DEPRESSION
     Route: 048
     Dates: start: 20120330, end: 20121013

REACTIONS (4)
  - Anxiety [None]
  - Depression [None]
  - Incorrect dose administered [None]
  - Product substitution issue [None]
